FAERS Safety Report 23779001 (Version 1)
Quarter: 2024Q2

REPORT INFORMATION
  Report Type: Spontaneous
  Country: US (occurrence: US)
  Receive Date: 20240424
  Receipt Date: 20240424
  Transmission Date: 20240717
  Serious: No
  Sender: FDA-Public Use
  Company Number: US-TEVA-VS-3180173

PATIENT
  Age: 50 Year
  Sex: Female

DRUGS (1)
  1. LENALIDOMIDE [Suspect]
     Active Substance: LENALIDOMIDE
     Indication: Plasma cell myeloma
     Dosage: FREQUENCY: 21
     Route: 065

REACTIONS (1)
  - Human chorionic gonadotropin increased [Unknown]
